FAERS Safety Report 19934725 (Version 1)
Quarter: 2021Q4

REPORT INFORMATION
  Report Type: Report from Study
  Country: US (occurrence: US)
  Receive Date: 20211008
  Receipt Date: 20211008
  Transmission Date: 20220303
  Serious: Yes (Other)
  Sender: FDA-Public Use
  Company Number: US-TAKEDA-US202006268

PATIENT
  Age: 56 Year
  Sex: Female

DRUGS (5)
  1. ICATIBANT ACETATE [Suspect]
     Active Substance: ICATIBANT ACETATE
     Indication: Product used for unknown indication
     Dosage: 30 GRAM, PRN
     Route: 058
     Dates: start: 2018
  2. ICATIBANT ACETATE [Suspect]
     Active Substance: ICATIBANT ACETATE
     Indication: Product used for unknown indication
     Dosage: 30 GRAM, PRN
     Route: 058
     Dates: start: 2018
  3. CINRYZE [Suspect]
     Active Substance: HUMAN C1-ESTERASE INHIBITOR
     Indication: Product used for unknown indication
     Dosage: 1000 MILLIGRAM, OTHER
     Route: 042
     Dates: start: 201901
  4. CINRYZE [Suspect]
     Active Substance: HUMAN C1-ESTERASE INHIBITOR
     Indication: Product used for unknown indication
     Dosage: 1000 MILLIGRAM, OTHER
     Route: 042
     Dates: start: 201901
  5. CINRYZE [Suspect]
     Active Substance: HUMAN C1-ESTERASE INHIBITOR
     Indication: Product used for unknown indication
     Dosage: 1000 MILLIGRAM, OTHER
     Route: 042
     Dates: start: 201901

REACTIONS (2)
  - Bradyphrenia [Unknown]
  - Weight increased [Unknown]

NARRATIVE: CASE EVENT DATE: 20210202
